FAERS Safety Report 7900378-8 (Version None)
Quarter: 2011Q4

REPORT INFORMATION
  Report Type: 
  Country: None (occurrence: None)
  Receive Date: 20111108
  Receipt Date: 20111029
  Transmission Date: 20120403
  Serious: No
  Sender: FDA-Public Use
  Company Number: US-PFIZER INC-2011268471

PATIENT
  Sex: Male

DRUGS (3)
  1. VIAGRA [Suspect]
     Indication: ERECTILE DYSFUNCTION
     Dosage: 100 MG, AS NEEDED
  2. ARICEPT [Concomitant]
     Dosage: 23 MG, DAILY
  3. NAMENDA [Concomitant]
     Dosage: 10 MG, 2X/DAY

REACTIONS (1)
  - DRUG INEFFECTIVE [None]
